FAERS Safety Report 9144156 (Version 6)
Quarter: 2013Q4

REPORT INFORMATION
  Report Type: Spontaneous
  Country: US (occurrence: US)
  Receive Date: 20130306
  Receipt Date: 20131213
  Transmission Date: 20140711
  Serious: Yes (Hospitalization, Other)
  Sender: FDA-Public Use
  Company Number: US-009507513-1303USA002308

PATIENT
  Sex: Male
  Weight: 99.77 kg

DRUGS (5)
  1. FOSAMAX [Suspect]
     Indication: OSTEITIS DEFORMANS
     Dosage: 70 MG, QW
     Route: 048
     Dates: start: 200203
  2. FOSAMAX [Suspect]
     Dosage: 70 MG, BIW
     Route: 048
     Dates: start: 200712
  3. VITAMIN D (UNSPECIFIED) [Concomitant]
     Dosage: 50000 IU, QW
     Dates: start: 2000
  4. PRILOSEC [Concomitant]
     Dosage: UNK
     Dates: start: 200701
  5. HORMONES (UNSPECIFIED) [Concomitant]
     Dosage: UNK
     Dates: start: 2000, end: 2007

REACTIONS (10)
  - Femur fracture [Unknown]
  - Intramedullary rod insertion [Unknown]
  - Haemoglobin decreased [Unknown]
  - Blood pressure orthostatic [Recovered/Resolved]
  - Bone disorder [Unknown]
  - Thrombosis [Unknown]
  - Fall [Unknown]
  - Inappropriate schedule of drug administration [Unknown]
  - Drug ineffective [Unknown]
  - Gastrooesophageal reflux disease [Unknown]
